FAERS Safety Report 7795517-6 (Version None)
Quarter: 2011Q4

REPORT INFORMATION
  Report Type: 
  Country: None (occurrence: None)
  Receive Date: 20111004
  Receipt Date: 20110315
  Transmission Date: 20120403
  Serious: No
  Sender: FDA-Public Use
  Company Number: US-BAYER-2011-023502

PATIENT
  Sex: Male

DRUGS (1)
  1. LEVITRA [Suspect]
     Dosage: 30 MG, UNK
     Route: 048
     Dates: start: 20090101

REACTIONS (1)
  - THERAPEUTIC PRODUCT INEFFECTIVE [None]
